FAERS Safety Report 8991254 (Version 2)
Quarter: 2013Q2

REPORT INFORMATION
  Report Type: Report from Study
  Country: CA (occurrence: CA)
  Receive Date: 20121231
  Receipt Date: 20130424
  Transmission Date: 20140414
  Serious: Yes (Other)
  Sender: FDA-Public Use
  Company Number: CA-ROCHE-1169182

PATIENT
  Age: 58 Year
  Sex: Female
  Weight: 138.47 kg

DRUGS (4)
  1. OMALIZUMAB [Suspect]
     Indication: ASTHMA
     Route: 058
     Dates: start: 20080129
  2. OMALIZUMAB [Suspect]
     Route: 058
     Dates: start: 20090817
  3. OMALIZUMAB [Suspect]
     Route: 065
     Dates: start: 20090914
  4. OMALIZUMAB [Suspect]
     Route: 058
     Dates: start: 20080929

REACTIONS (21)
  - Arterial occlusive disease [Unknown]
  - Cellulitis [Unknown]
  - Chest discomfort [Unknown]
  - Hypersensitivity [Unknown]
  - Constipation [Unknown]
  - Asthma [Unknown]
  - Blood pressure decreased [Unknown]
  - Heart rate increased [Unknown]
  - Wound [Unknown]
  - Suffocation feeling [Unknown]
  - Sleep apnoea syndrome [Unknown]
  - Fibromyalgia [Unknown]
  - Dysphonia [Unknown]
  - Lower respiratory tract infection [Unknown]
  - Throat irritation [Unknown]
  - Tooth abscess [Unknown]
  - Back pain [Unknown]
  - Nasopharyngitis [Unknown]
  - Sinus congestion [Unknown]
  - Cough [Unknown]
  - Bronchitis [Unknown]
